FAERS Safety Report 9528285 (Version 1)
Quarter: 2013Q3

REPORT INFORMATION
  Report Type: Spontaneous
  Country: US (occurrence: US)
  Receive Date: 20130917
  Receipt Date: 20130917
  Transmission Date: 20140515
  Serious: Yes (Hospitalization)
  Sender: FDA-Public Use
  Company Number: US-BAYER-2013-110433

PATIENT
  Age: 42 Year
  Sex: Female
  Weight: 129.71 kg

DRUGS (10)
  1. YAZ [Suspect]
  2. YASMIN [Suspect]
  3. XANAX [Concomitant]
  4. BECLOMETHASONE [Concomitant]
     Dosage: 40 ?G, INHALER
  5. NEXIUM [Concomitant]
  6. FLONASE [Concomitant]
  7. LORATADINE [Concomitant]
  8. SINGULAIR [Concomitant]
     Dosage: 10 MG, UNK
     Route: 048
  9. RHINOCORT [Concomitant]
     Dosage: 0.032 MG, INHALER
  10. QVAR [Concomitant]

REACTIONS (2)
  - Pulmonary embolism [None]
  - Deep vein thrombosis [None]
